FAERS Safety Report 4959655-5 (Version None)
Quarter: 2006Q1

REPORT INFORMATION
  Report Type: 
  Country: None (occurrence: None)
  Receive Date: 20060328
  Receipt Date: 20060313
  Transmission Date: 20060701
  Serious: Yes (Death)
  Sender: FDA-Public Use
  Company Number: 2006S1001350

PATIENT
  Age: 45 Year
  Sex: Male
  Weight: 99.7913 kg

DRUGS (5)
  1. CLOZAPINE [Suspect]
     Indication: SCHIZOPHRENIA
     Dosage: 25 MG; QAM; ORAL; 50 MG; HS; ORAL;
     Route: 048
     Dates: start: 20011101, end: 20060101
  2. CLOZAPINE [Suspect]
     Indication: SCHIZOPHRENIA
     Dosage: 25 MG; QAM; ORAL; 50 MG; HS; ORAL;
     Route: 048
     Dates: start: 20011101, end: 20060101
  3. CLOZAPINE [Suspect]
     Indication: SCHIZOPHRENIA
     Dosage: 300 MG; QAM; ORAL; 300 MG; HS; ORAL
     Route: 048
     Dates: start: 20011101, end: 20060101
  4. CLOZAPINE [Suspect]
     Indication: SCHIZOPHRENIA
     Dosage: 300 MG; QAM; ORAL; 300 MG; HS; ORAL
     Route: 048
     Dates: start: 20011101, end: 20060101
  5. FLUOXETINE HCL [Concomitant]

REACTIONS (2)
  - CORONARY ARTERY OCCLUSION [None]
  - MYOCARDIAL INFARCTION [None]
